FAERS Safety Report 18944827 (Version 1)
Quarter: 2021Q1

REPORT INFORMATION
  Report Type: Spontaneous
  Country: US (occurrence: US)
  Receive Date: 20210226
  Receipt Date: 20210226
  Transmission Date: 20210420
  Serious: Yes (Hospitalization, Other)
  Sender: FDA-Public Use
  Company Number: US-TEVA-2021-US-1883276

PATIENT
  Age: 53 Year
  Sex: Male
  Weight: 72.12 kg

DRUGS (10)
  1. ASPIRIN. [Concomitant]
     Active Substance: ASPIRIN
     Indication: NEPHROTIC SYNDROME
     Route: 065
  2. ALLOPURINOL. [Concomitant]
     Active Substance: ALLOPURINOL
     Route: 065
  3. AJOVY [Suspect]
     Active Substance: FREMANEZUMAB-VFRM
  4. TOPAMAX [Concomitant]
     Active Substance: TOPIRAMATE
     Indication: NAUSEA
     Route: 065
  5. LISINOPRIL. [Concomitant]
     Active Substance: LISINOPRIL
     Route: 065
  6. LEVOTHYROXINE. [Concomitant]
     Active Substance: LEVOTHYROXINE
     Indication: HYPOTHYROIDISM
     Route: 065
  7. LIPITOR [Concomitant]
     Active Substance: ATORVASTATIN CALCIUM
     Route: 065
  8. AJOVY [Suspect]
     Active Substance: FREMANEZUMAB-VFRM
     Indication: MIGRAINE WITH AURA
     Dosage: QUARTERLY
     Route: 065
     Dates: start: 202008
  9. TOPAMAX [Concomitant]
     Active Substance: TOPIRAMATE
     Indication: VOMITING
  10. TOPAMAX [Concomitant]
     Active Substance: TOPIRAMATE
     Indication: MIGRAINE

REACTIONS (7)
  - Illness [Unknown]
  - Headache [Not Recovered/Not Resolved]
  - Pain [Unknown]
  - Diverticular perforation [Recovering/Resolving]
  - Muscle atrophy [Not Recovered/Not Resolved]
  - Wrong technique in product usage process [Unknown]
  - Diverticulitis [Unknown]

NARRATIVE: CASE EVENT DATE: 20201222
